FAERS Safety Report 9363092 (Version 2)
Quarter: 2013Q2

REPORT INFORMATION
  Report Type: Spontaneous
  Country: US (occurrence: US)
  Receive Date: 20130624
  Receipt Date: 20130626
  Transmission Date: 20140414
  Serious: No
  Sender: FDA-Public Use
  Company Number: US-PFIZER INC-2013185227

PATIENT
  Age: 22 Year
  Sex: Male
  Weight: 158.73 kg

DRUGS (1)
  1. ALAVERT [Suspect]
     Indication: HYPERSENSITIVITY
     Dosage: UNK, ONCE A DAY
     Route: 048
     Dates: start: 20130612

REACTIONS (1)
  - Drug ineffective [Unknown]
